FAERS Safety Report 6431835-1 (Version None)
Quarter: 2009Q4

REPORT INFORMATION
  Report Type: 
  Country: None (occurrence: None)
  Receive Date: 20091108
  Receipt Date: 20091028
  Transmission Date: 20100525
  Serious: Yes (Hospitalization)
  Sender: FDA-Public Use
  Company Number: JP-SANOFI-AVENTIS-200913000JP

PATIENT
  Age: 83 Year
  Sex: Female
  Weight: 46 kg

DRUGS (8)
  1. FUROSEMIDE [Suspect]
     Route: 048
     Dates: end: 20080808
  2. SPIRONOLACTONE [Suspect]
     Route: 048
     Dates: end: 20080808
  3. CIPRALAN [Suspect]
     Route: 048
     Dates: start: 20080212, end: 20080808
  4. FAMOTIDINE [Concomitant]
     Route: 048
     Dates: end: 20080808
  5. METILDIGOXIN [Concomitant]
     Route: 048
     Dates: end: 20080808
  6. ALLOPURINOL [Concomitant]
     Route: 048
     Dates: end: 20080808
  7. REBAMIPIDE [Concomitant]
     Route: 048
     Dates: end: 20080808
  8. WARFARIN SODIUM [Concomitant]
     Route: 048
     Dates: end: 20080808

REACTIONS (4)
  - DEHYDRATION [None]
  - DRUG LEVEL INCREASED [None]
  - HYPOGLYCAEMIA [None]
  - RENAL IMPAIRMENT [None]
